FAERS Safety Report 17733908 (Version 1)
Quarter: 2020Q2

REPORT INFORMATION
  Report Type: Spontaneous
  Country: US (occurrence: US)
  Receive Date: 20200501
  Receipt Date: 20200501
  Transmission Date: 20200714
  Serious: Yes (Hospitalization)
  Sender: FDA-Public Use
  Company Number: US-PFIZER INC-2020175509

PATIENT
  Age: 73 Year
  Sex: Female
  Weight: 83.91 kg

DRUGS (2)
  1. DESVENLAFAXINE SUCCINATE MONOHYDRATE [Suspect]
     Active Substance: DESVENLAFAXINE SUCCINATE
     Indication: DEPRESSION
     Dosage: 100 MG
     Route: 048
  2. DESVENLAFAXINE SUCCINATE MONOHYDRATE [Suspect]
     Active Substance: DESVENLAFAXINE SUCCINATE
     Dosage: 50 MG, 1X/DAY
     Route: 048

REACTIONS (8)
  - Feeling abnormal [Unknown]
  - Gait disturbance [Unknown]
  - Herpes zoster [Unknown]
  - Loss of personal independence in daily activities [Unknown]
  - Palpitations [Unknown]
  - Withdrawal syndrome [Unknown]
  - Dyspnoea [Unknown]
  - Asthma [Unknown]
